FAERS Safety Report 15323685 (Version 2)
Quarter: 2018Q3

REPORT INFORMATION
  Report Type: Spontaneous
  Country: CA (occurrence: CA)
  Receive Date: 20180827
  Receipt Date: 20180907
  Transmission Date: 20181010
  Serious: Yes (Hospitalization)
  Sender: FDA-Public Use
  Company Number: CA-ASTRAZENECA-2018SF07509

PATIENT
  Age: 57 Year
  Sex: Female

DRUGS (1)
  1. FORXIGA [Suspect]
     Active Substance: DAPAGLIFLOZIN
     Indication: TYPE 2 DIABETES MELLITUS
     Dosage: 5 MG EVERY DAY
     Route: 048
     Dates: start: 20170510

REACTIONS (1)
  - Post procedural cellulitis [Unknown]

NARRATIVE: CASE EVENT DATE: 20170510
